FAERS Safety Report 12649643 (Version 1)
Quarter: 2016Q3

REPORT INFORMATION
  Report Type: Spontaneous
  Country: GB (occurrence: GB)
  Receive Date: 20160812
  Receipt Date: 20160812
  Transmission Date: 20161109
  Serious: Yes (Other)
  Sender: FDA-Public Use
  Company Number: PHHY2016GB109124

PATIENT
  Age: 69 Year
  Sex: Female

DRUGS (2)
  1. CANDESARTAN CILEXETIL. [Suspect]
     Active Substance: CANDESARTAN CILEXETIL
     Indication: HYPERTENSION
     Dosage: 16 MG, QD
     Route: 065
  2. BENDROFLUMETHIAZIDE [Suspect]
     Active Substance: BENDROFLUMETHIAZIDE
     Indication: HYPERTENSION
     Route: 065

REACTIONS (8)
  - Dry mouth [Recovered/Resolved]
  - Adhesion [Recovered/Resolved]
  - Dry throat [Recovered/Resolved]
  - Pharyngeal erythema [Recovered/Resolved]
  - Dysphonia [Recovered/Resolved]
  - Pharyngeal oedema [Recovered/Resolved]
  - Pertussis [Recovered/Resolved]
  - Dyspnoea [Recovered/Resolved]

NARRATIVE: CASE EVENT DATE: 2005
